FAERS Safety Report 5952612-1 (Version None)
Quarter: 2008Q4

REPORT INFORMATION
  Report Type: 
  Country: None (occurrence: None)
  Receive Date: 20081031
  Receipt Date: 20080107
  Transmission Date: 20090506
  Serious: Yes (Other)
  Sender: FDA-Public Use
  Company Number: US-WYE-H02047008

PATIENT
  Age: 72 Year
  Sex: Female

DRUGS (3)
  1. PREMARIN [Suspect]
     Indication: HOT FLUSH
     Dosage: 0.625 MG 1X PER 1 DAY, VAGINAL
     Route: 067
     Dates: end: 20071230
  2. VITAMIN E [Concomitant]
  3. VITAMIN B12 [Concomitant]

REACTIONS (1)
  - BREAST CYST [None]
